FAERS Safety Report 6687633-7 (Version None)
Quarter: 2010Q2

REPORT INFORMATION
  Report Type: 
  Country: None (occurrence: None)
  Receive Date: 20100415
  Receipt Date: 20100331
  Transmission Date: 20101027
  Serious: Yes (Hospitalization, Other)
  Sender: FDA-Public Use
  Company Number: IDA-00346

PATIENT
  Age: 70 Year
  Sex: Female

DRUGS (6)
  1. PROPRANOLOL [Suspect]
     Indication: ANXIETY
     Dosage: ORAL FORMULATION:
     Dates: start: 20100317, end: 20100319
  2. PROPRANOLOL [Suspect]
     Indication: PALPITATIONS
     Dosage: ORAL FORMULATION:
     Dates: start: 20100317, end: 20100319
  3. FLUANXOL (FLUPENTIXOL DIHYDROCHLORIDE) [Concomitant]
  4. (PARACETAMOL) [Concomitant]
  5. PROCHLORPERAZINE [Concomitant]
  6. TEMAZEPAM [Concomitant]

REACTIONS (2)
  - DYSPNOEA [None]
  - WHEEZING [None]
